FAERS Safety Report 19511190 (Version 1)
Quarter: 2021Q3

REPORT INFORMATION
  Report Type: Spontaneous
  Country: FR (occurrence: FR)
  Receive Date: 20210709
  Receipt Date: 20210709
  Transmission Date: 20211014
  Serious: Yes (Hospitalization, Other)
  Sender: FDA-Public Use
  Company Number: FR-AUROBINDO-AUR-APL-2021-028152

PATIENT
  Age: 49 Year
  Sex: Female
  Weight: 77 kg

DRUGS (3)
  1. LAROXYL [Suspect]
     Active Substance: AMITRIPTYLINE HYDROCHLORIDE
     Indication: GAIT DISTURBANCE
     Dosage: 7 MILLIGRAM, ONCE A DAY
     Route: 048
     Dates: start: 20210601
  2. WELLVONE [Suspect]
     Active Substance: ATOVAQUONE
     Indication: PARASITIC INFECTION PROPHYLAXIS
     Dosage: 750 MILLIGRAM, TWO TIMES A DAY
     Route: 048
     Dates: start: 20210603
  3. AMOXICILLIN. [Suspect]
     Active Substance: AMOXICILLIN
     Indication: ANTIBIOTIC PROPHYLAXIS
     Dosage: 2 GRAM, ONCE A DAY
     Route: 048
     Dates: start: 20210603

REACTIONS (4)
  - Rash [Recovered/Resolved]
  - Pruritus [Recovering/Resolving]
  - Mixed liver injury [Recovering/Resolving]
  - Eosinophilia [Recovering/Resolving]

NARRATIVE: CASE EVENT DATE: 202106
